FAERS Safety Report 4955385-4 (Version None)
Quarter: 2006Q1

REPORT INFORMATION
  Report Type: 
  Country: None (occurrence: None)
  Receive Date: 20060322
  Receipt Date: 20060317
  Transmission Date: 20060701
  Serious: Yes (Death)
  Sender: FDA-Public Use
  Company Number: 2006PV009140

PATIENT
  Age: 25 Year
  Sex: Female
  Weight: 95.2554 kg

DRUGS (8)
  1. BYETTA [Suspect]
     Indication: DIABETES MELLITUS NON-INSULIN-DEPENDENT
     Dosage: SEE IMAGE
     Route: 058
     Dates: start: 20050902, end: 20050926
  2. BYETTA [Suspect]
     Indication: OBESITY
     Dosage: SEE IMAGE
     Route: 058
     Dates: start: 20050902, end: 20050926
  3. BYETTA [Suspect]
     Indication: DIABETES MELLITUS NON-INSULIN-DEPENDENT
     Dosage: SEE IMAGE
     Route: 058
     Dates: start: 20050927, end: 20060201
  4. BYETTA [Suspect]
     Indication: OBESITY
     Dosage: SEE IMAGE
     Route: 058
     Dates: start: 20050927, end: 20060201
  5. ANTI-DIABETICS [Concomitant]
  6. CADUET [Concomitant]
  7. ADVAIR DISKUS 100/50 [Concomitant]
  8. PROVENTIL [Concomitant]

REACTIONS (2)
  - ARTERIAL OCCLUSIVE DISEASE [None]
  - PHARMACEUTICAL PRODUCT COMPLAINT [None]
